FAERS Safety Report 11333927 (Version 1)
Quarter: 2015Q3

REPORT INFORMATION
  Report Type: Spontaneous
  Country: US (occurrence: US)
  Receive Date: 20150803
  Receipt Date: 20150803
  Transmission Date: 20151125
  Serious: No
  Sender: FDA-Public Use
  Company Number: US-PFIZER INC-2015255572

PATIENT
  Sex: Female
  Weight: 77 kg

DRUGS (2)
  1. CRYSELLE [Suspect]
     Active Substance: ETHINYL ESTRADIOL\NORGESTREL
     Indication: CONTRACEPTION
     Dosage: 330 MG, UNK
  2. LO/OVRAL-28 [Suspect]
     Active Substance: ETHINYL ESTRADIOL\NORGESTREL
     Indication: CONTRACEPTION
     Dosage: UNK

REACTIONS (5)
  - Menopausal symptoms [Unknown]
  - Anxiety [Unknown]
  - Insomnia [Unknown]
  - Activities of daily living impaired [Unknown]
  - Asthenia [Unknown]
